FAERS Safety Report 7519140-3 (Version None)
Quarter: 2011Q2

REPORT INFORMATION
  Report Type: 
  Country: None (occurrence: None)
  Receive Date: 20110602
  Receipt Date: 20110520
  Transmission Date: 20111010
  Serious: No
  Sender: FDA-Public Use
  Company Number: PHHY2011AU18789

PATIENT
  Sex: Male

DRUGS (2)
  1. CLOZARIL [Suspect]
     Dosage: 300 MG, UNK
     Dates: start: 20001219
  2. ZELDOX                                  /GFR/ [Concomitant]
     Dosage: 80 MG, UNK
     Route: 048
     Dates: start: 20091128

REACTIONS (2)
  - DEPRESSED MOOD [None]
  - GENERAL PHYSICAL HEALTH DETERIORATION [None]
